FAERS Safety Report 7449219-6 (Version None)
Quarter: 2011Q2

REPORT INFORMATION
  Report Type: 
  Country: None (occurrence: None)
  Receive Date: 20110502
  Receipt Date: 20110420
  Transmission Date: 20111010
  Serious: Yes (Death, Other)
  Sender: FDA-Public Use
  Company Number: BR-BIOGENIDEC-2011BI014942

PATIENT
  Age: 56 Year
  Sex: Female

DRUGS (3)
  1. OMEPRAZOLE [Concomitant]
     Indication: PROPHYLAXIS
  2. UNSPECIFIED MEDICINE [Concomitant]
     Indication: DIABETES MELLITUS
     Route: 048
  3. AVONEX [Suspect]
     Indication: MULTIPLE SCLEROSIS
     Route: 030
     Dates: start: 20060301, end: 20101201

REACTIONS (4)
  - ARRHYTHMIA [None]
  - MALAISE [None]
  - MYOCARDIAL INFARCTION [None]
  - THROMBOSIS [None]
